FAERS Safety Report 25722693 (Version 1)
Quarter: 2025Q3

REPORT INFORMATION
  Report Type: Spontaneous
  Country: CN (occurrence: CN)
  Receive Date: 20250825
  Receipt Date: 20250825
  Transmission Date: 20251021
  Serious: Yes (Life-Threatening)
  Sender: BEIGENE
  Company Number: CN-BEIGENE-BGN-2025-014219

PATIENT
  Age: 60 Year
  Weight: 60 kg

DRUGS (8)
  1. TISLELIZUMAB [Suspect]
     Active Substance: TISLELIZUMAB
     Indication: Gastric cancer
  2. TISLELIZUMAB [Suspect]
     Active Substance: TISLELIZUMAB
     Route: 041
  3. TISLELIZUMAB [Suspect]
     Active Substance: TISLELIZUMAB
     Route: 041
  4. TISLELIZUMAB [Suspect]
     Active Substance: TISLELIZUMAB
  5. DOCETAXEL [Suspect]
     Active Substance: DOCETAXEL
     Indication: Gastric cancer
     Route: 041
  6. DOCETAXEL [Suspect]
     Active Substance: DOCETAXEL
  7. RIVOCERANIB MESYLATE [Suspect]
     Active Substance: RIVOCERANIB MESYLATE
     Indication: Gastric cancer
     Dosage: 0.5 GRAM, QD
     Route: 048
  8. RIVOCERANIB MESYLATE [Suspect]
     Active Substance: RIVOCERANIB MESYLATE
     Dosage: 0.5 GRAM, QD

REACTIONS (1)
  - Myelosuppression [Unknown]
